FAERS Safety Report 9373898 (Version 1)
Quarter: 2013Q2

REPORT INFORMATION
  Report Type: Spontaneous
  Country: US (occurrence: US)
  Receive Date: 20130628
  Receipt Date: 20130628
  Transmission Date: 20140414
  Serious: No
  Sender: FDA-Public Use
  Company Number: US-009507513-1107USA03633

PATIENT
  Age: 64 Year
  Sex: Female

DRUGS (2)
  1. COZAAR [Suspect]
     Dosage: 25 MG, UNK
     Route: 048
     Dates: start: 20110503, end: 20110510
  2. COZAAR [Suspect]
     Dosage: 50 MG, UNK
     Route: 048
     Dates: start: 20110511, end: 20110513

REACTIONS (7)
  - Hypertension [Recovered/Resolved]
  - Hypoaesthesia [Recovered/Resolved]
  - Nausea [Recovered/Resolved]
  - Nausea [Unknown]
  - Headache [Recovered/Resolved]
  - Diarrhoea [Recovered/Resolved]
  - Drug ineffective [Unknown]
